FAERS Safety Report 17257085 (Version 1)
Quarter: 2019Q4

REPORT INFORMATION
  Report Type: Spontaneous
  Country: US (occurrence: US)
  Receive Date: 20191217
  Receipt Date: 20191217
  Transmission Date: 20200122
  Serious: Yes (Disabling)
  Sender: FDA-Public Use
  Company Number: None

PATIENT
  Age: 27 Year
  Sex: Male
  Weight: 88 kg

DRUGS (7)
  1. OMEPRAZOLE. [Concomitant]
     Active Substance: OMEPRAZOLE
  2. LAMOTRIGINE. [Concomitant]
     Active Substance: LAMOTRIGINE
  3. LORAZEPAM. [Concomitant]
     Active Substance: LORAZEPAM
  4. MULTIVITAMIN [Concomitant]
     Active Substance: VITAMINS
  5. LACOSAMIDE. [Concomitant]
     Active Substance: LACOSAMIDE
  6. CLOBAZAM 30MG TABLET [Suspect]
     Active Substance: CLOBAZAM
     Indication: EPILEPSY
     Dosage: 24HRS-48HRS GENARIC WAS ATTEMPTED, HAS BEEN ON BRAND SINCE 2016
     Route: 048
     Dates: start: 201611, end: 201611
  7. OLANZEPAINE [Concomitant]

REACTIONS (5)
  - Nausea [None]
  - Vomiting [None]
  - Ammonia increased [None]
  - Rash [None]
  - Product substitution issue [None]

NARRATIVE: CASE EVENT DATE: 20161128
